FAERS Safety Report 13100923 (Version 3)
Quarter: 2017Q2

REPORT INFORMATION
  Report Type: Spontaneous
  Country: US (occurrence: US)
  Receive Date: 20170110
  Receipt Date: 20170623
  Transmission Date: 20170830
  Serious: No
  Sender: FDA-Public Use
  Company Number: US-ASTRAZENECA-2017SE01642

PATIENT
  Sex: Female
  Weight: 65.3 kg

DRUGS (4)
  1. LOSARTAN/HCTZ [Concomitant]
     Active Substance: HYDROCHLOROTHIAZIDE\LOSARTAN
     Indication: HYPERTENSION
     Dosage: 50/12.5 MG DAILY
     Route: 048
     Dates: start: 1987
  2. SYMBICORT [Suspect]
     Active Substance: BUDESONIDE\FORMOTEROL FUMARATE DIHYDRATE
     Indication: ASTHMA
     Dosage: 160/4.5 UG 2 PUFFS TWICE PER DAY
     Route: 055
     Dates: start: 2013
  3. SYMBICORT [Suspect]
     Active Substance: BUDESONIDE\FORMOTEROL FUMARATE DIHYDRATE
     Indication: ASTHMA
     Dosage: SOMETIMES, SHE ONLY TAKE THE MORNING DOSE AND NOT THE EVENING DOSE
     Route: 055
  4. SYMBICORT [Suspect]
     Active Substance: BUDESONIDE\FORMOTEROL FUMARATE DIHYDRATE
     Indication: ASTHMA
     Dosage: ONE PUFF AT NIGHT
     Route: 055

REACTIONS (8)
  - Dysgeusia [Unknown]
  - Cough [Unknown]
  - Intentional product misuse [Unknown]
  - Dyspnoea [Unknown]
  - Productive cough [Unknown]
  - Drug dose omission [Unknown]
  - Malaise [Unknown]
  - Device malfunction [Unknown]

NARRATIVE: CASE EVENT DATE: 2013
